FAERS Safety Report 15470133 (Version 2)
Quarter: 2018Q4

REPORT INFORMATION
  Report Type: Spontaneous
  Country: BE (occurrence: BE)
  Receive Date: 20181005
  Receipt Date: 20181031
  Transmission Date: 20190205
  Serious: Yes (Hospitalization)
  Sender: FDA-Public Use
  Company Number: BE-TEVA-2018-BE-960777

PATIENT
  Age: 94 Year
  Sex: Male
  Weight: 72.1 kg

DRUGS (5)
  1. DAFALGAN ODIS 500 MG [Concomitant]
     Dosage: 2 DOSAGE FORMS DAILY;
     Route: 048
     Dates: start: 20180909
  2. OMEPRAZOLE 20 MG [Suspect]
     Active Substance: OMEPRAZOLE
     Indication: GASTRIC ULCER
  3. OMEPRAZOLE 20 MG [Suspect]
     Active Substance: OMEPRAZOLE
     Indication: OESOPHAGITIS
     Dosage: 20 MILLIGRAM DAILY;
     Route: 048
  4. SERLAIN 50 MG [Concomitant]
     Indication: DEPRESSION
     Dosage: 50 MILLIGRAM DAILY;
     Route: 048
  5. METATOP 2 MG [Concomitant]
     Indication: INSOMNIA
     Dosage: 2 MILLIGRAM DAILY;
     Route: 048

REACTIONS (2)
  - Clostridium difficile infection [Recovering/Resolving]
  - Fall [Recovering/Resolving]

NARRATIVE: CASE EVENT DATE: 20180909
